FAERS Safety Report 8902184 (Version 1)
Quarter: 2012Q4

REPORT INFORMATION
  Report Type: 
  Country: CL (occurrence: CL)
  Receive Date: 20121112
  Receipt Date: 20121112
  Transmission Date: 20130627
  Serious: Yes (Hospitalization)
  Sender: FDA-Public Use
  Company Number: CL-AMGEN-CHLSP2012071565

PATIENT
  Sex: Female
  Weight: 76 kg

DRUGS (2)
  1. NEULASTA [Suspect]
     Indication: LEUKOPENIA
     Dosage: 6 mg, one time dose
     Route: 058
     Dates: start: 20120924, end: 20120924
  2. DOXORUBICIN [Suspect]
     Indication: PRODUCT USED FOR UNKNOWN INDICATION
     Dosage: UNK
     Route: 065
     Dates: start: 20120923

REACTIONS (2)
  - Leukopenia [Unknown]
  - Drug ineffective [Unknown]
